FAERS Safety Report 4997886-9 (Version None)
Quarter: 2006Q2

REPORT INFORMATION
  Report Type: 
  Country: None (occurrence: None)
  Receive Date: 20060510
  Receipt Date: 20060503
  Transmission Date: 20061013
  Serious: Yes (Other)
  Sender: FDA-Public Use
  Company Number: US-AVENTIS-200614000US

PATIENT
  Age: 51 Year
  Sex: Female
  Weight: 45 kg

DRUGS (2)
  1. KETEK [Suspect]
     Indication: LOWER RESPIRATORY TRACT INFECTION
     Route: 048
     Dates: start: 20060401
  2. CORTICOSTEROIDS [Concomitant]
     Route: 055

REACTIONS (2)
  - DIPLOPIA [None]
  - PARESIS CRANIAL NERVE [None]
